FAERS Safety Report 10912622 (Version 1)
Quarter: 2015Q1

REPORT INFORMATION
  Report Type: Spontaneous
  Country: US (occurrence: None)
  Receive Date: 20150310
  Receipt Date: 20150310
  Transmission Date: 20150721
  Serious: No
  Sender: FDA-Public Use
  Company Number: None

PATIENT
  Age: 73 Year
  Sex: Male

DRUGS (1)
  1. EXJADE [Suspect]
     Active Substance: DEFERASIROX
     Indication: BLOOD IRON INCREASED
     Dosage: 10-28-15 - 1-12-15  DATES GIVEN
     Route: 048
     Dates: end: 20150112

REACTIONS (3)
  - Pneumonia [None]
  - Weight increased [None]
  - Drug dose omission [None]

NARRATIVE: CASE EVENT DATE: 20150112
